FAERS Safety Report 18031727 (Version 1)
Quarter: 2020Q3

REPORT INFORMATION
  Report Type: Spontaneous
  Country: US (occurrence: US)
  Receive Date: 20200716
  Receipt Date: 20200716
  Transmission Date: 20201103
  Serious: No
  Sender: FDA-Public Use
  Company Number: None

PATIENT
  Sex: Female
  Weight: 63 kg

DRUGS (7)
  1. FLAXSEED [Concomitant]
     Active Substance: FLAX SEED
  2. CALCIUM [Concomitant]
     Active Substance: CALCIUM
  3. EMSAM [Suspect]
     Active Substance: SELEGILINE
     Indication: MAJOR DEPRESSION
     Dosage: ?          OTHER STRENGTH:MG/24H;QUANTITY:30 PATCH(ES);?
     Route: 062
     Dates: start: 20200524
  4. MULTIVITAMIN [Concomitant]
     Active Substance: VITAMINS
  5. BUSPAR [Concomitant]
     Active Substance: BUSPIRONE HYDROCHLORIDE
  6. VISTARIL [Concomitant]
     Active Substance: HYDROXYZINE PAMOATE
  7. VITAMIN D [Concomitant]
     Active Substance: VITAMIN D NOS

REACTIONS (3)
  - Skin reaction [None]
  - Application site erythema [None]
  - Application site swelling [None]
